FAERS Safety Report 4376910-0 (Version None)
Quarter: 2004Q2

REPORT INFORMATION
  Report Type: 
  Country: None (occurrence: None)
  Receive Date: 20040608
  Receipt Date: 20040524
  Transmission Date: 20050107
  Serious: Yes (Other)
  Sender: FDA-Public Use
  Company Number: 2004215668GB

PATIENT
  Age: 50 Year
  Sex: Female
  Weight: 88.9 kg

DRUGS (3)
  1. VALDECOXIB [Suspect]
     Indication: COSTOCHONDRITIS
     Dosage: 40 MG, QD, ORAL
     Route: 048
     Dates: start: 20040428, end: 20040502
  2. DICLOFENAC SODIUM [Concomitant]
  3. CLONIDINE HCL [Concomitant]

REACTIONS (2)
  - LIVER FUNCTION TEST ABNORMAL [None]
  - RASH [None]
